FAERS Safety Report 7639463-7 (Version None)
Quarter: 2011Q3

REPORT INFORMATION
  Report Type: 
  Country: None (occurrence: None)
  Receive Date: 20110727
  Receipt Date: 20110721
  Transmission Date: 20111222
  Serious: Yes (Hospitalization)
  Sender: FDA-Public Use
  Company Number: CA-GLAXOSMITHKLINE-A0931666A

PATIENT
  Sex: Male
  Weight: 93 kg

DRUGS (1)
  1. LAPATINIB [Suspect]
     Indication: NEOPLASM
     Dosage: 1250MG PER DAY
     Route: 048
     Dates: start: 20110301

REACTIONS (1)
  - GASTROINTESTINAL HAEMORRHAGE [None]
